FAERS Safety Report 10245331 (Version 1)
Quarter: 2014Q2

REPORT INFORMATION
  Report Type: Spontaneous
  Country: US (occurrence: US)
  Receive Date: 20140618
  Receipt Date: 20140618
  Transmission Date: 20141212
  Serious: Yes (Hospitalization, Other)
  Sender: FDA-Public Use
  Company Number: US-ROCHE-1420375

PATIENT
  Age: 43 Year
  Sex: Female

DRUGS (1)
  1. VALIUM [Suspect]
     Indication: STIFF PERSON SYNDROME
     Route: 065

REACTIONS (2)
  - Pelvic fracture [Unknown]
  - Fall [Unknown]
